FAERS Safety Report 9029713 (Version 1)
Quarter: 2013Q1

REPORT INFORMATION
  Report Type: Spontaneous
  Country: FR (occurrence: FR)
  Receive Date: 20130124
  Receipt Date: 20130124
  Transmission Date: 20140127
  Serious: Yes (Hospitalization)
  Sender: FDA-Public Use
  Company Number: FR-B.I. PHARMACEUTICALS,INC./RIDGEFIELD-2013-FF-00170FF

PATIENT
  Age: 64 Year
  Sex: Male
  Weight: 85 kg

DRUGS (2)
  1. PRADAXA [Suspect]
     Indication: THROMBOSIS PROPHYLAXIS
     Dosage: 220 MG
     Route: 048
     Dates: start: 201212, end: 201212
  2. DOLIPRANE [Concomitant]
     Dosage: 4000 MG
     Route: 048

REACTIONS (3)
  - Pulmonary embolism [Recovered/Resolved]
  - Venous thrombosis [Not Recovered/Not Resolved]
  - Oedema peripheral [Unknown]
